FAERS Safety Report 16731074 (Version 1)
Quarter: 2019Q4

REPORT INFORMATION
  Report Type: Spontaneous
  Country: US (occurrence: US)
  Receive Date: 20190822
  Receipt Date: 20190822
  Transmission Date: 20200122
  Serious: Yes (Disabling)
  Sender: FDA-Public Use
  Company Number: None

PATIENT
  Age: 54 Year
  Sex: Female
  Weight: 60.75 kg

DRUGS (5)
  1. FEMRING [Concomitant]
     Active Substance: ESTRADIOL ACETATE
  2. PROGESTERONE. [Concomitant]
     Active Substance: PROGESTERONE
  3. NATURE-THROID [Concomitant]
     Active Substance: THYROID, PORCINE
  4. TALTZ [Suspect]
     Active Substance: IXEKIZUMAB
     Indication: PSORIASIS
     Route: 058
     Dates: start: 20190522, end: 20190606
  5. STELARA [Concomitant]
     Active Substance: USTEKINUMAB

REACTIONS (12)
  - Abdominal pain [None]
  - Nausea [None]
  - Frequent bowel movements [None]
  - Eye irritation [None]
  - Dyspepsia [None]
  - Dry eye [None]
  - Arthralgia [None]
  - Diarrhoea [None]
  - Fungal infection [None]
  - Stomatitis [None]
  - Tendon pain [None]
  - Micturition urgency [None]

NARRATIVE: CASE EVENT DATE: 20190522
